FAERS Safety Report 5934631-4 (Version None)
Quarter: 2008Q4

REPORT INFORMATION
  Report Type: 
  Country: None (occurrence: None)
  Receive Date: 20081010
  Receipt Date: 20080718
  Transmission Date: 20090506
  Serious: No
  Sender: FDA-Public Use
  Company Number: 2008BM000142

PATIENT
  Age: 15 Year
  Sex: Female

DRUGS (1)
  1. KUVAN [Suspect]
     Indication: PHENYLKETONURIA
     Dosage: 1000 MG;QD;PO
     Route: 048
     Dates: start: 20080101, end: 20080201

REACTIONS (8)
  - ABDOMINAL PAIN UPPER [None]
  - ABNORMAL BEHAVIOUR [None]
  - DECREASED APPETITE [None]
  - DIZZINESS [None]
  - FEELING ABNORMAL [None]
  - HEADACHE [None]
  - IMPULSE-CONTROL DISORDER [None]
  - THINKING ABNORMAL [None]
